FAERS Safety Report 16313453 (Version 1)
Quarter: 2019Q2

REPORT INFORMATION
  Report Type: Spontaneous
  Country: US (occurrence: US)
  Receive Date: 20190514
  Receipt Date: 20190514
  Transmission Date: 20190711
  Serious: Yes (Life-Threatening, Hospitalization, Other)
  Sender: FDA-Public Use
  Company Number: None

PATIENT
  Sex: Female
  Weight: 140.61 kg

DRUGS (6)
  1. ROCEPHIN [Suspect]
     Active Substance: CEFTRIAXONE SODIUM
     Indication: URINARY TRACT INFECTION
     Dates: start: 20190506, end: 20190506
  2. CALCITROIL [Concomitant]
  3. ROCEPHIN [Suspect]
     Active Substance: CEFTRIAXONE SODIUM
     Indication: BLOOD CALCIUM DECREASED
     Dates: start: 20190506, end: 20190506
  4. CALCIUM INFUSION IV [Suspect]
     Active Substance: CALCIUM
  5. SYNTHROID [Concomitant]
     Active Substance: LEVOTHYROXINE SODIUM
  6. NALPARA [Concomitant]

REACTIONS (2)
  - Seizure [None]
  - Anaphylactic shock [None]
